FAERS Safety Report 11014252 (Version 2)
Quarter: 2015Q2

REPORT INFORMATION
  Report Type: Spontaneous
  Country: US (occurrence: US)
  Receive Date: 20150412
  Receipt Date: 20150525
  Transmission Date: 20150821
  Serious: No
  Sender: FDA-Public Use
  Company Number: US-JNJFOC-20140607228

PATIENT
  Sex: Female
  Weight: 90.27 kg

DRUGS (14)
  1. VASOTEC [Concomitant]
     Active Substance: ENALAPRIL MALEATE
  2. WELLBUTRIN [Concomitant]
     Active Substance: BUPROPION HYDROCHLORIDE
  3. GLUCOPHAGE [Concomitant]
     Active Substance: METFORMIN HYDROCHLORIDE
  4. ASPIRIN. [Concomitant]
     Active Substance: ASPIRIN
  5. BYETTA [Concomitant]
     Active Substance: EXENATIDE
  6. CALCIUM [Concomitant]
     Active Substance: CALCIUM
  7. OLYSIO [Suspect]
     Active Substance: SIMEPREVIR
     Indication: HEPATITIS C
     Route: 048
     Dates: start: 20140517
  8. VICTOZA [Concomitant]
     Active Substance: LIRAGLUTIDE
  9. SOVALDI [Suspect]
     Active Substance: SOFOSBUVIR
     Indication: HEPATITIS C
     Route: 065
     Dates: start: 201405
  10. SYNTHROID [Concomitant]
     Active Substance: LEVOTHYROXINE SODIUM
  11. KLONOPIN [Concomitant]
     Active Substance: CLONAZEPAM
  12. ZOLOFT [Concomitant]
     Active Substance: SERTRALINE HYDROCHLORIDE
  13. FOLIC ACID. [Concomitant]
     Active Substance: FOLIC ACID
  14. MVI [Concomitant]
     Active Substance: VITAMINS

REACTIONS (4)
  - Fatigue [Unknown]
  - Off label use [Unknown]
  - Dyspnoea [Unknown]
  - Pruritus [Recovered/Resolved]

NARRATIVE: CASE EVENT DATE: 2014
